FAERS Safety Report 24310333 (Version 2)
Quarter: 2025Q1

REPORT INFORMATION
  Report Type: Spontaneous
  Country: CN (occurrence: CN)
  Receive Date: 20240912
  Receipt Date: 20250311
  Transmission Date: 20250409
  Serious: Yes (Hospitalization, Other)
  Sender: ABBVIE
  Company Number: CN-ABBVIE-5913567

PATIENT
  Age: 12 Year
  Sex: Male

DRUGS (3)
  1. HUMIRA [Suspect]
     Active Substance: ADALIMUMAB
     Indication: Juvenile idiopathic arthritis
     Dosage: LAST ADMIN DATE 2024
     Route: 058
     Dates: start: 202403
  2. NAPROXEN [Concomitant]
     Active Substance: NAPROXEN
     Indication: Juvenile idiopathic arthritis
     Route: 065
     Dates: start: 2024
  3. SULFASALAZINE [Concomitant]
     Active Substance: SULFASALAZINE
     Indication: Juvenile idiopathic arthritis
     Route: 065
     Dates: start: 2024

REACTIONS (10)
  - Intentional self-injury [Recovered/Resolved]
  - Delusion [Recovered/Resolved]
  - Drug ineffective [Unknown]
  - Hallucination, auditory [Recovered/Resolved]
  - Hallucination, visual [Recovered/Resolved]
  - Affect lability [Recovered/Resolved]
  - Derealisation [Recovered/Resolved]
  - Suicidal ideation [Recovered/Resolved]
  - Depressed mood [Recovered/Resolved]
  - Decreased activity [Recovered/Resolved]

NARRATIVE: CASE EVENT DATE: 20240101
